FAERS Safety Report 18192482 (Version 1)
Quarter: 2020Q3

REPORT INFORMATION
  Report Type: Spontaneous
  Country: US (occurrence: US)
  Receive Date: 20200825
  Receipt Date: 20200825
  Transmission Date: 20201103
  Serious: No
  Sender: FDA-Public Use
  Company Number: None

PATIENT
  Age: 70 Year
  Sex: Female
  Weight: 63.9 kg

DRUGS (4)
  1. ONCE WEEKLY ALENDRONATE SODIUM TABLETS, USP 70 MG [Suspect]
     Active Substance: ALENDRONATE SODIUM
     Indication: OSTEOPOROSIS
     Dosage: ?          QUANTITY:1 TABLET(S);OTHER FREQUENCY:WEEKLY;?
     Route: 048
     Dates: start: 20200628, end: 20200705
  2. ONCE WEEKLY ALENDRONATE SODIUM TABLETS, USP 70 MG [Suspect]
     Active Substance: ALENDRONATE SODIUM
     Indication: OSTEOPENIA
     Dosage: ?          QUANTITY:1 TABLET(S);OTHER FREQUENCY:WEEKLY;?
     Route: 048
     Dates: start: 20200628, end: 20200705
  3. VITAMIN D3 [Concomitant]
     Active Substance: CHOLECALCIFEROL
  4. LUTEIN/ZEAXANTHIN [Concomitant]

REACTIONS (6)
  - Pyrexia [None]
  - Headache [None]
  - Arthralgia [None]
  - Musculoskeletal stiffness [None]
  - Neck pain [None]
  - Therapy cessation [None]

NARRATIVE: CASE EVENT DATE: 20200628
